FAERS Safety Report 8621785-4 (Version None)
Quarter: 2012Q3

REPORT INFORMATION
  Report Type: 
  Country: None (occurrence: None)
  Receive Date: 20120821
  Receipt Date: 20120821
  Transmission Date: 20120928
  Serious: Yes (Disabling)
  Sender: FDA-Public Use
  Company Number: None

PATIENT
  Age: 56 Year
  Sex: Female
  Weight: 86.1834 kg

DRUGS (7)
  1. OMEPRAZOLE [Concomitant]
  2. RANITIDINE [Concomitant]
  3. TRAMADOL HCL [Concomitant]
  4. LEVOFLOXACIN [Suspect]
     Indication: CELLULITIS
     Dosage: PO
     Route: 048
     Dates: start: 20120507, end: 20120515
  5. LEVOFLOXACIN [Suspect]
     Indication: CELLULITIS
     Dosage: IV DRIP
     Route: 041
     Dates: start: 20120506, end: 20120506
  6. IBUPROFEN [Concomitant]
  7. LORATADINE [Concomitant]

REACTIONS (9)
  - BACK PAIN [None]
  - ARTHRALGIA [None]
  - ROTATOR CUFF SYNDROME [None]
  - IMPAIRED SELF-CARE [None]
  - FATIGUE [None]
  - PAIN IN EXTREMITY [None]
  - JOINT RANGE OF MOTION DECREASED [None]
  - MYALGIA [None]
  - TENDON PAIN [None]
